FAERS Safety Report 4292403-3 (Version None)
Quarter: 2004Q1

REPORT INFORMATION
  Report Type: 
  Country: None (occurrence: None)
  Receive Date: 20040126
  Receipt Date: 20031015
  Transmission Date: 20041129
  Serious: No
  Sender: FDA-Public Use
  Company Number: USA031049998

PATIENT
  Age: 66 Year
  Sex: Female

DRUGS (4)
  1. FORTEO [Suspect]
     Indication: OSTEOPOROSIS
     Dates: start: 20030925
  2. PREVACID [Concomitant]
  3. ALTACE [Concomitant]
  4. CLARINEX [Concomitant]

REACTIONS (5)
  - BREAST DISCOMFORT [None]
  - HEART RATE INCREASED [None]
  - MUSCLE CRAMP [None]
  - SENSORY DISTURBANCE [None]
  - SINUS HEADACHE [None]
